FAERS Safety Report 8798243 (Version 1)
Quarter: 2012Q4

REPORT INFORMATION
  Report Type: 
  Country: US (occurrence: US)
  Receive Date: 20120920
  Receipt Date: 20120920
  Transmission Date: 20130627
  Serious: Yes (Hospitalization)
  Sender: FDA-Public Use
  Company Number: US-ASTRAZENECA-2012SE72498

PATIENT
  Age: 51 Year
  Sex: Female
  Weight: 108.9 kg

DRUGS (4)
  1. SEROQUEL [Suspect]
     Indication: BIPOLAR DISORDER
     Route: 048
  2. SEROQUEL [Suspect]
     Indication: DEPRESSION
     Route: 048
  3. SEROQUEL [Suspect]
     Indication: BIPOLAR DISORDER
     Route: 048
  4. SEROQUEL [Suspect]
     Indication: DEPRESSION
     Route: 048

REACTIONS (6)
  - Pneumonia [Unknown]
  - Crohn^s disease [Unknown]
  - Candidiasis [Unknown]
  - Diabetes mellitus [Unknown]
  - Drug dose omission [Unknown]
  - Depression [Unknown]
